FAERS Safety Report 4332001-6 (Version None)
Quarter: 2004Q2

REPORT INFORMATION
  Report Type: 
  Country: None (occurrence: None)
  Receive Date: 20040405
  Receipt Date: 20031117
  Transmission Date: 20050107
  Serious: No
  Sender: FDA-Public Use
  Company Number: US-GLAXOSMITHKLINE-A0440253A

PATIENT
  Age: 80 Year
  Sex: Female

DRUGS (19)
  1. SEREVENT [Suspect]
     Dosage: 50MCG TWICE PER DAY
     Route: 055
     Dates: start: 20031028, end: 20031102
  2. NEXIUM [Concomitant]
     Dosage: 40MG PER DAY
     Route: 065
  3. PROPOXYPHENE [Concomitant]
     Route: 065
  4. ACTOS [Concomitant]
     Dosage: 7.5MG UNKNOWN
     Route: 065
  5. CARTIA [Concomitant]
     Dosage: 120MG PER DAY
     Route: 065
  6. DIGOXIN [Concomitant]
     Dosage: .125MG PER DAY
     Route: 065
  7. LISINOPRIL [Concomitant]
     Route: 065
  8. LORAZEPAM [Concomitant]
     Dosage: .5MG PER DAY
     Route: 065
  9. WARFARIN SODIUM [Concomitant]
     Route: 065
  10. ASPIRIN [Concomitant]
     Dosage: 81MG ALTERNATE DAYS
     Route: 065
  11. VITAMIN B-12 [Concomitant]
     Route: 065
  12. LIPITOR [Concomitant]
     Dosage: 5MG PER DAY
     Route: 065
  13. FOLIC ACID [Concomitant]
     Dosage: 1MG PER DAY
     Route: 065
  14. FUROSEMIDE [Concomitant]
     Dosage: 80MG PER DAY
     Route: 065
  15. UNKNOWN MEDICATION [Concomitant]
     Route: 065
  16. ALBUTEROL [Concomitant]
     Route: 065
  17. IPRATROPIUM BROMIDE [Concomitant]
     Dosage: .5MG TWICE PER DAY
     Route: 065
  18. BUDESONIDE [Concomitant]
     Dosage: .3MG TWICE PER DAY
     Route: 065
  19. PILOCARPINE [Concomitant]
     Dosage: 1DROP TWICE PER DAY
     Route: 047

REACTIONS (2)
  - DYSSTASIA [None]
  - TREMOR [None]
